FAERS Safety Report 7738010-9 (Version None)
Quarter: 2011Q3

REPORT INFORMATION
  Report Type: 
  Country: None (occurrence: None)
  Receive Date: 20110908
  Receipt Date: 20110906
  Transmission Date: 20111222
  Serious: Yes (Other)
  Sender: FDA-Public Use
  Company Number: US-PFIZER INC-2011208585

PATIENT
  Sex: Male
  Weight: 72.562 kg

DRUGS (1)
  1. PREPARATION H MAXIMUM STRENGTH [Suspect]
     Indication: HAEMORRHOIDS
     Dosage: UNK
     Route: 061
     Dates: start: 20110906

REACTIONS (5)
  - ARTHRITIS INFECTIVE [None]
  - HAEMORRHOIDS [None]
  - BURNING SENSATION [None]
  - APPLICATION SITE PAIN [None]
  - CONDITION AGGRAVATED [None]
